FAERS Safety Report 9204862 (Version 1)
Quarter: 2013Q2

REPORT INFORMATION
  Report Type: Spontaneous
  Country: US (occurrence: US)
  Receive Date: 20130402
  Receipt Date: 20130402
  Transmission Date: 20140414
  Serious: No
  Sender: FDA-Public Use
  Company Number: US-009507513-1303USA008795

PATIENT
  Sex: Female

DRUGS (13)
  1. LISINOPRIL [Suspect]
     Route: 048
  2. FLEXERIL [Concomitant]
     Indication: MUSCLE SPASMS
     Dosage: 1 TAB TWICE DAILY, PRN
     Route: 048
  3. ZANTAC [Concomitant]
     Dosage: 150 MG, BID
     Route: 048
  4. NORVASC [Concomitant]
     Indication: BLOOD PRESSURE
     Dosage: 10 MG, QD
     Route: 048
  5. ULTRAM [Concomitant]
     Indication: ARTHRALGIA
     Dosage: 50 MG, Q8H
     Route: 048
  6. LASIX (FUROSEMIDE) [Concomitant]
     Indication: BLOOD PRESSURE
     Dosage: 20 MG, QD
     Route: 048
  7. LASIX (FUROSEMIDE) [Concomitant]
     Indication: SWELLING
  8. PROTONIX [Concomitant]
     Dosage: 40 G, 30 MIN BEFORE BREAKFAST QAM
     Route: 048
  9. NEURONTIN [Concomitant]
     Route: 048
  10. NEURONTIN [Concomitant]
     Dosage: 300 MG, BID
     Route: 048
     Dates: start: 20121017
  11. LORTAB [Concomitant]
     Indication: PAIN
     Dosage: 5-500 MG, EVERY NIGHT AT BEDTIME QD
     Route: 048
  12. TENORMIN [Concomitant]
     Indication: BLOOD PRESSURE
     Dosage: 100 MG, QD
     Route: 048
  13. ASPIRIN [Concomitant]
     Dosage: 81 MG, QD
     Route: 048

REACTIONS (1)
  - Drug hypersensitivity [Unknown]
